FAERS Safety Report 25153790 (Version 1)
Quarter: 2025Q2

REPORT INFORMATION
  Report Type: Report from Study
  Country: US (occurrence: US)
  Receive Date: 20250403
  Receipt Date: 20250403
  Transmission Date: 20250717
  Serious: Yes (Other)
  Sender: ALEXION PHARMACEUTICALS
  Company Number: US-AstraZeneca-CH-00836902A

PATIENT
  Weight: 83.1 kg

DRUGS (1)
  1. OLAPARIB [Suspect]
     Active Substance: OLAPARIB
     Indication: Ovarian cancer
     Dosage: 200 MILLIGRAM, BID

REACTIONS (14)
  - Cough [Unknown]
  - Upper-airway cough syndrome [Unknown]
  - Claustrophobia [Unknown]
  - Blood alcohol increased [Unknown]
  - Incarcerated hernia [Unknown]
  - Arthralgia [Unknown]
  - Back pain [Unknown]
  - Depression [Unknown]
  - Fatigue [Unknown]
  - Initial insomnia [Unknown]
  - Neutrophil count decreased [Unknown]
  - Red blood cell count decreased [Unknown]
  - Platelet count decreased [Unknown]
  - Gastrooesophageal reflux disease [Unknown]
